FAERS Safety Report 4913720-7 (Version None)
Quarter: 2006Q1

REPORT INFORMATION
  Report Type: 
  Country: None (occurrence: None)
  Receive Date: 20060216
  Receipt Date: 20060208
  Transmission Date: 20060701
  Serious: Yes (Other)
  Sender: FDA-Public Use
  Company Number: PHEH2006US01895

PATIENT
  Age: 77 Year
  Sex: Female

DRUGS (5)
  1. DIOVAN [Suspect]
     Indication: HYPERTENSION
     Dosage: 160 MG, QD
     Route: 048
     Dates: start: 20021201, end: 20031201
  2. DIOVAN [Suspect]
     Dosage: 240 MG, QD
     Route: 048
     Dates: start: 20031201, end: 20051101
  3. DIOVAN [Suspect]
     Dosage: 320 MG, QD
     Route: 048
     Dates: start: 20051101
  4. NORVASK [Concomitant]
     Indication: HYPERTENSION
  5. ATENOLOL [Concomitant]
     Indication: HYPERTENSION

REACTIONS (5)
  - CARDIOMEGALY [None]
  - COUGH [None]
  - DRY MOUTH [None]
  - FLATULENCE [None]
  - INSOMNIA [None]
